FAERS Safety Report 6272118-2 (Version None)
Quarter: 2009Q3

REPORT INFORMATION
  Report Type: 
  Country: None (occurrence: None)
  Receive Date: 20090713
  Receipt Date: 20090422
  Transmission Date: 20100115
  Serious: No
  Sender: FDA-Public Use
  Company Number: 2009BM000099

PATIENT
  Age: 7 Year
  Sex: Male

DRUGS (2)
  1. KUVAN [Suspect]
     Indication: PHENYLKETONURIA
     Dosage: 2400 MG; QD; PO
     Route: 048
     Dates: start: 20090323, end: 20090407
  2. NUTRIENTS WITHOUT PHENYLALANINE [Concomitant]

REACTIONS (1)
  - VOMITING [None]
